FAERS Safety Report 7267740-0 (Version None)
Quarter: 2011Q1

REPORT INFORMATION
  Report Type: 
  Country: None (occurrence: None)
  Receive Date: 20110201
  Receipt Date: 20110124
  Transmission Date: 20110831
  Serious: Yes (Death)
  Sender: FDA-Public Use
  Company Number: US-CELGENEUS-163-20785-11010877

PATIENT
  Sex: Male

DRUGS (5)
  1. THALOMID [Suspect]
     Route: 048
     Dates: start: 20100901
  2. THALOMID [Suspect]
     Route: 048
     Dates: start: 20080101
  3. THALOMID [Suspect]
     Dosage: 400MG-200MG
     Route: 048
     Dates: start: 20080501
  4. THALOMID [Suspect]
     Indication: MULTIPLE MYELOMA
     Route: 048
     Dates: start: 20070801
  5. PERCOCET [Concomitant]
     Route: 065

REACTIONS (3)
  - MULTIPLE MYELOMA [None]
  - LUNG NEOPLASM MALIGNANT [None]
  - PROSTATE CANCER [None]
